FAERS Safety Report 5886512-2 (Version None)
Quarter: 2008Q3

REPORT INFORMATION
  Report Type: 
  Country: None (occurrence: None)
  Receive Date: 20080917
  Receipt Date: 20080909
  Transmission Date: 20090109
  Serious: Yes (Hospitalization)
  Sender: FDA-Public Use
  Company Number: US-MERCK-0809USA01377

PATIENT
  Age: 58 Year
  Sex: Female

DRUGS (5)
  1. SINGULAIR [Suspect]
     Indication: HYPERSENSITIVITY
     Route: 048
     Dates: start: 20030101
  2. ACTONEL [Concomitant]
     Route: 065
  3. LEXAPRO [Concomitant]
     Route: 065
  4. LAMICTAL [Concomitant]
     Route: 065
  5. LUNESTA [Concomitant]
     Route: 065

REACTIONS (1)
  - GASTRIC DISORDER [None]
